FAERS Safety Report 7557671-0 (Version None)
Quarter: 2011Q2

REPORT INFORMATION
  Report Type: 
  Country: None (occurrence: None)
  Receive Date: 20110620
  Receipt Date: 20110610
  Transmission Date: 20111010
  Serious: Yes (Congenital Anomaly, Other)
  Sender: FDA-Public Use
  Company Number: US-JNJFOC-20060704204

PATIENT
  Sex: Male
  Weight: 3.29 kg

DRUGS (4)
  1. TOPAMAX [Suspect]
     Indication: DRUG EXPOSURE DURING PREGNANCY
     Route: 015
     Dates: start: 20050803
  2. TOPAMAX [Suspect]
     Route: 015
     Dates: start: 20060201
  3. LAMICTAL [Suspect]
     Indication: DRUG EXPOSURE DURING PREGNANCY
     Route: 015
     Dates: start: 20050803
  4. DILANTIN [Suspect]
     Indication: DRUG EXPOSURE DURING PREGNANCY
     Route: 015
     Dates: start: 20050803

REACTIONS (3)
  - DERMAL SINUS [None]
  - TETHERED CORD SYNDROME [None]
  - SPINA BIFIDA OCCULTA [None]
